FAERS Safety Report 4756056-X (Version None)
Quarter: 2005Q3

REPORT INFORMATION
  Report Type: 
  Country: None (occurrence: None)
  Receive Date: 20050826
  Receipt Date: 20041115
  Transmission Date: 20060218
  Serious: Yes (Other)
  Sender: FDA-Public Use
  Company Number: USA-2004-0017737

PATIENT
  Age: 58 Year
  Sex: Female

DRUGS (1)
  1. OXYCONTIN [Suspect]
     Dosage: 60 MG, DAILY
     Dates: start: 20020101

REACTIONS (8)
  - ANGER [None]
  - DRUG DEPENDENCE [None]
  - DRUG WITHDRAWAL SYNDROME [None]
  - EUPHORIC MOOD [None]
  - FORMICATION [None]
  - PAIN [None]
  - PSYCHOMOTOR HYPERACTIVITY [None]
  - SOCIAL AVOIDANT BEHAVIOUR [None]
